FAERS Safety Report 4310775-8 (Version None)
Quarter: 2004Q1

REPORT INFORMATION
  Report Type: 
  Country: None (occurrence: None)
  Receive Date: 20040303
  Receipt Date: 20040224
  Transmission Date: 20041129
  Serious: Yes (Death)
  Sender: FDA-Public Use
  Company Number: WAES 0402USA01838

PATIENT
  Age: 73 Year
  Sex: Female

DRUGS (1)
  1. VIOXX [Suspect]
     Route: 048
     Dates: start: 20020111, end: 20030310

REACTIONS (9)
  - BLOOD PRESSURE FLUCTUATION [None]
  - CARDIAC ARREST [None]
  - ERYTHEMA [None]
  - ESSENTIAL HYPERTENSION [None]
  - HYPOTHYROIDISM [None]
  - MYOCARDIAL INFARCTION [None]
  - OEDEMA PERIPHERAL [None]
  - SWELLING FACE [None]
  - VENTRICULAR FIBRILLATION [None]
